FAERS Safety Report 4772327-5 (Version None)
Quarter: 2005Q3

REPORT INFORMATION
  Report Type: 
  Country: None (occurrence: None)
  Receive Date: 20050919
  Receipt Date: 20040901
  Transmission Date: 20060218
  Serious: No
  Sender: FDA-Public Use
  Company Number: US-BRISTOL-MYERS SQUIBB COMPANY-12690145

PATIENT
  Age: 39 Year
  Sex: Female
  Weight: 60 kg

DRUGS (10)
  1. TRIMOX [Suspect]
     Indication: PROPHYLAXIS
     Route: 048
     Dates: start: 20040726, end: 20040730
  2. LEVOTHYROXINE SODIUM [Concomitant]
  3. APRI [Concomitant]
     Route: 048
  4. LEUPROLIDE [Concomitant]
     Route: 051
  5. ESTRADIOL [Concomitant]
  6. METHYLPREDNISOLONE [Concomitant]
  7. PROGESTERONE [Concomitant]
     Route: 051
  8. PROGESTERONE [Concomitant]
     Route: 054
  9. ASPIRIN [Concomitant]
  10. VITAMINS MULTIPLE [Concomitant]

REACTIONS (2)
  - PRURITUS [None]
  - RASH [None]
